FAERS Safety Report 10572858 (Version 1)
Quarter: 2014Q4

REPORT INFORMATION
  Report Type: Spontaneous
  Country: IN (occurrence: None)
  Receive Date: 20141106
  Receipt Date: 20141106
  Transmission Date: 20150529
  Serious: Yes (Hospitalization)
  Sender: FDA-Public Use
  Company Number: IPC201410-000572

PATIENT
  Age: 28 Year
  Sex: Female

DRUGS (2)
  1. ATENOLOL 50 MG [Suspect]
     Active Substance: ATENOLOL
     Dosage: TABLET, TOTAL 950 MG
  2. AMLODIPINE [Suspect]
     Active Substance: AMLODIPINE BESYLATE
     Dosage: TOTAL 95 MG

REACTIONS (9)
  - Protein urine [None]
  - Renal disorder [None]
  - Polyuria [None]
  - Blood pressure systolic decreased [None]
  - Hyperglycaemia [None]
  - Bradycardia [None]
  - Intentional overdose [None]
  - Haematuria [None]
  - Oliguria [None]
